FAERS Safety Report 8487834-1 (Version None)
Quarter: 2012Q2

REPORT INFORMATION
  Report Type: 
  Country: None (occurrence: None)
  Receive Date: 20120402
  Receipt Date: 20110203
  Transmission Date: 20120825
  Serious: Yes (Other)
  Sender: FDA-Public Use
  Company Number: PHHY2011US08798

PATIENT
  Age: 47 Year
  Sex: Male

DRUGS (7)
  1. SINGULAIR [Concomitant]
  2. EXFORGE [Suspect]
     Dosage: AMLODIPINE 10, VALSARTAN 160, PER DAY, ORAL
     Route: 048
     Dates: start: 20091101
  3. PROTONIX [Concomitant]
  4. KLONOPIN [Concomitant]
  5. VANTELIN (INDOMETACIN, MENTHOL) [Concomitant]
  6. PLAVIX [Concomitant]
  7. SYMBICORT [Concomitant]

REACTIONS (3)
  - DRUG INEFFECTIVE [None]
  - BLOOD PRESSURE INADEQUATELY CONTROLLED [None]
  - MYOCARDIAL INFARCTION [None]
